FAERS Safety Report 5750606-2 (Version None)
Quarter: 2008Q2

REPORT INFORMATION
  Report Type: 
  Country: None (occurrence: None)
  Receive Date: 20080523
  Receipt Date: 20080523
  Transmission Date: 20081010
  Serious: Yes (Other)
  Sender: FDA-Public Use
  Company Number: None

PATIENT
  Age: 85 Year
  Sex: Male

DRUGS (1)
  1. CARDINAL HEALTH ALCOHOL-FREE MOUTHWASH [Suspect]

REACTIONS (3)
  - BURKHOLDERIA CEPACIA INFECTION [None]
  - PHARMACEUTICAL PRODUCT COMPLAINT [None]
  - SPUTUM CULTURE POSITIVE [None]
